FAERS Safety Report 19299108 (Version 3)
Quarter: 2021Q2

REPORT INFORMATION
  Report Type: Spontaneous
  Country: EG (occurrence: EG)
  Receive Date: 20210525
  Receipt Date: 20210624
  Transmission Date: 20210717
  Serious: Yes (Life-Threatening)
  Sender: FDA-Public Use
  Company Number: EG-NOVOPROD-814721

PATIENT
  Sex: Female

DRUGS (4)
  1. MIXTARD 30 HM PENFILL [Suspect]
     Active Substance: INSULIN HUMAN
     Dosage: TWICE 10 IU CORRECTIVE DOSE THEN ANOTHER 10 IU
     Route: 058
  2. MIXTARD 30 HM PENFILL [Suspect]
     Active Substance: INSULIN HUMAN
     Indication: DIABETES MELLITUS
     Dosage: 85 IU, QD(DOSE 60 IU MORNING? 25 IU NIGHT)
     Route: 058
  3. CONCOR [Concomitant]
     Active Substance: BISOPROLOL FUMARATE
     Indication: HYPERTENSION
     Dosage: START 8 MONTHS AGO ? 1 TAB ORALLY MORNING
     Route: 048
  4. MIXTARD 30 HM PENFILL [Suspect]
     Active Substance: INSULIN HUMAN
     Dosage: UNK
     Route: 058

REACTIONS (5)
  - Device difficult to use [Unknown]
  - Diabetic hyperglycaemic coma [Recovered/Resolved]
  - Device malfunction [Unknown]
  - Product storage error [Unknown]
  - Device breakage [Unknown]
